FAERS Safety Report 9948903 (Version 4)
Quarter: 2014Q2

REPORT INFORMATION
  Report Type: Spontaneous
  Country: US (occurrence: US)
  Receive Date: 20140304
  Receipt Date: 20140417
  Transmission Date: 20141212
  Serious: Yes (Death, Hospitalization)
  Sender: FDA-Public Use
  Company Number: US-BEH-2013034442

PATIENT
  Age: 59 Year
  Sex: Female
  Weight: 56 kg

DRUGS (21)
  1. HIZENTRA [Suspect]
     Dosage: 1 GM EVERY 1 TO 2 HOURS ON 4 TO 6 SITES
     Route: 058
     Dates: start: 20121226, end: 20121226
  2. HIZENTRA [Suspect]
     Indication: IMMUNODEFICIENCY COMMON VARIABLE
     Dosage: 4 GM EVERY 1 TO 2 HOURS ON 4 TO 6 SITES
     Route: 058
     Dates: start: 20121226, end: 20121226
  3. LIDOCAINE/PRILOCAINE [Concomitant]
  4. DIPHENHYDRAMINE [Concomitant]
  5. ANAKIT [Concomitant]
  6. EPIPEN [Concomitant]
  7. KLONOPIN [Concomitant]
  8. AMBIEN [Concomitant]
  9. TRILEPTA [Concomitant]
  10. VITAMIN B COMPLEX W/C [Concomitant]
  11. FISH OIL [Concomitant]
  12. MULTIVITAMIN [Concomitant]
  13. KELP [Concomitant]
  14. ASCRIPTIN [Concomitant]
  15. FLAX OIL [Concomitant]
  16. OXYCONTIN [Concomitant]
  17. GLUCOSAMINE-MSM COMPLETX [Concomitant]
  18. BACLOFEN [Concomitant]
  19. FOLIC ACID [Concomitant]
  20. FENTORA [Concomitant]
  21. VITAMIN D [Concomitant]

REACTIONS (6)
  - Neoplasm malignant [Fatal]
  - Death [Fatal]
  - Pulmonary oedema [Recovered/Resolved]
  - Dyspnoea [Recovered/Resolved]
  - Unevaluable event [Recovered/Resolved]
  - Infusion site reaction [Recovered/Resolved]
